FAERS Safety Report 10872551 (Version 2)
Quarter: 2015Q1

REPORT INFORMATION
  Report Type: Spontaneous
  Country: US (occurrence: US)
  Receive Date: 20150227
  Receipt Date: 20150312
  Transmission Date: 20150721
  Serious: Yes (Death, Hospitalization)
  Sender: FDA-Public Use
  Company Number: US-BAUSCH-BL-2015-003209

PATIENT
  Age: 52 Year
  Sex: Male
  Weight: 74.91 kg

DRUGS (2)
  1. DEMSER [Suspect]
     Active Substance: METYROSINE
     Indication: PARAGANGLION NEOPLASM
     Route: 048
     Dates: start: 201412
  2. DEMSER [Suspect]
     Active Substance: METYROSINE
     Indication: BLOOD PRESSURE MANAGEMENT

REACTIONS (1)
  - Leukaemia [Fatal]

NARRATIVE: CASE EVENT DATE: 20150214
